FAERS Safety Report 4975476-1 (Version None)
Quarter: 2006Q2

REPORT INFORMATION
  Report Type: 
  Country: None (occurrence: None)
  Receive Date: 20060417
  Receipt Date: 20060417
  Transmission Date: 20061013
  Serious: No
  Sender: FDA-Public Use
  Company Number: None

PATIENT
  Sex: Male

DRUGS (1)
  1. OXYCONTIN [Suspect]
     Indication: BACK PAIN
     Dosage: 2 PO Q 8 HRS
     Route: 048

REACTIONS (2)
  - ABDOMINAL DISCOMFORT [None]
  - UNEVALUABLE EVENT [None]
